FAERS Safety Report 8234614-8 (Version None)
Quarter: 2012Q1

REPORT INFORMATION
  Report Type: 
  Country: None (occurrence: None)
  Receive Date: 20120321
  Receipt Date: 20120307
  Transmission Date: 20120608
  Serious: Yes (Death, Life-Threatening, Hospitalization, Other)
  Sender: FDA-Public Use
  Company Number: 2008AL010974

PATIENT
  Age: 45 Year
  Sex: Male
  Weight: 88.4514 kg

DRUGS (17)
  1. ASPIRIN [Concomitant]
  2. FOLIC ACID [Concomitant]
  3. AMIODARONE HCL [Concomitant]
  4. FAMOTIDINE [Concomitant]
  5. CEFEPIME [Concomitant]
  6. FOLPLEX [Concomitant]
  7. DILANTIN [Concomitant]
  8. LOPRESSOR [Concomitant]
  9. LASIX [Concomitant]
  10. DIGOXIN [Suspect]
     Indication: CARDIAC DISORDER
     Dosage: 250 MCG;QD;PO
     Route: 048
     Dates: start: 20061017, end: 20071203
  11. VITAMIN TAB [Concomitant]
  12. INSULIN [Concomitant]
  13. AMOXICILLIN [Concomitant]
  14. ALTACE [Concomitant]
  15. FABB [Concomitant]
  16. LEVAQUIN [Concomitant]
  17. CARVEDILOL [Concomitant]

REACTIONS (33)
  - ANGINA PECTORIS [None]
  - CARDIAC DISORDER [None]
  - VENTRICULAR ARRHYTHMIA [None]
  - POSTURING [None]
  - ECONOMIC PROBLEM [None]
  - SUPRAVENTRICULAR TACHYARRHYTHMIA [None]
  - CHEST DISCOMFORT [None]
  - CHEST PAIN [None]
  - RENAL FAILURE [None]
  - ACUTE MYOCARDIAL INFARCTION [None]
  - ELECTROCARDIOGRAM POOR R-WAVE PROGRESSION [None]
  - STRESS ECHOCARDIOGRAM ABNORMAL [None]
  - DYSPNOEA EXERTIONAL [None]
  - SINUS TACHYCARDIA [None]
  - RESPIRATORY FAILURE [None]
  - UNRESPONSIVE TO STIMULI [None]
  - ASTHENIA [None]
  - LEFT ATRIAL DILATATION [None]
  - MULTIPLE INJURIES [None]
  - PALPITATIONS [None]
  - HYPOXIC-ISCHAEMIC ENCEPHALOPATHY [None]
  - APNOEA [None]
  - DYSKINESIA [None]
  - DIZZINESS [None]
  - VENTRICULAR FIBRILLATION [None]
  - BLOOD TRIGLYCERIDES INCREASED [None]
  - TOXICITY TO VARIOUS AGENTS [None]
  - ELECTROCARDIOGRAM T WAVE INVERSION [None]
  - CARDIAC ARREST [None]
  - SUPRAVENTRICULAR EXTRASYSTOLES [None]
  - ATRIAL FIBRILLATION [None]
  - ELECTROCARDIOGRAM ST-T CHANGE [None]
  - ELECTROCARDIOGRAM T WAVE ABNORMAL [None]
